FAERS Safety Report 6071571-7 (Version None)
Quarter: 2009Q1

REPORT INFORMATION
  Report Type: 
  Country: None (occurrence: None)
  Receive Date: 20090205
  Receipt Date: 20090205
  Transmission Date: 20090719
  Serious: Yes (Hospitalization)
  Sender: FDA-Public Use
  Company Number: None

PATIENT
  Sex: Male
  Weight: 98.8842 kg

DRUGS (2)
  1. CARVEDILOL [Suspect]
     Indication: CARDIAC FAILURE CONGESTIVE
     Dosage: ONE BID PO
     Route: 048
     Dates: start: 20041001
  2. FUROSEMIDE 80MG [Suspect]
     Indication: CARDIAC VALVE DISEASE
     Dosage: 2 1 2QAM 1QPM PO
     Route: 048
     Dates: start: 20050101

REACTIONS (1)
  - THERAPEUTIC RESPONSE UNEXPECTED WITH DRUG SUBSTITUTION [None]
